FAERS Safety Report 5566603-6 (Version None)
Quarter: 2007Q4

REPORT INFORMATION
  Report Type: 
  Country: None (occurrence: None)
  Receive Date: 20071219
  Receipt Date: 20071210
  Transmission Date: 20080405
  Serious: Yes (Other)
  Sender: FDA-Public Use
  Company Number: US-ELI_LILLY_AND_COMPANY-US200712001869

PATIENT
  Sex: Female

DRUGS (10)
  1. FORTEO [Suspect]
     Dates: start: 20060101
  2. PREDNISONE [Concomitant]
  3. DARVOCET [Concomitant]
  4. LISINOPRIL [Concomitant]
  5. PROTONIX [Concomitant]
  6. CLARINEX [Concomitant]
     Dosage: UNK, AS NEEDED
  7. OXYBUTYNIN CHLORIDE [Concomitant]
     Dosage: UNK, AS NEEDED
  8. FOLIC ACID [Concomitant]
  9. OSCAL [Concomitant]
  10. LORTAB [Concomitant]
     Dosage: UNK, AS NEEDED

REACTIONS (3)
  - ARTHROPATHY [None]
  - HIP FRACTURE [None]
  - KNEE ARTHROPLASTY [None]
